FAERS Safety Report 8266688-2 (Version None)
Quarter: 2012Q2

REPORT INFORMATION
  Report Type: 
  Country: None (occurrence: None)
  Receive Date: 20120408
  Receipt Date: 20120404
  Transmission Date: 20120825
  Serious: Yes (Hospitalization, Other)
  Sender: FDA-Public Use
  Company Number: US-BRISTOL-MYERS SQUIBB COMPANY-16210551

PATIENT
  Age: 66 Year
  Sex: Male

DRUGS (3)
  1. MYCOPHENOLATE MOFETIL (CELLCEPT) [Suspect]
     Dates: start: 20061116
  2. BELATACEPT [Suspect]
     Indication: RENAL TRANSPLANT
     Route: 042
     Dates: start: 20071011
  3. PREDNISONE TAB [Suspect]
     Dates: start: 20071101

REACTIONS (2)
  - RESPIRATORY FAILURE [None]
  - PNEUMONIA [None]
